FAERS Safety Report 6357057-0 (Version None)
Quarter: 2009Q3

REPORT INFORMATION
  Report Type: 
  Country: None (occurrence: None)
  Receive Date: 20090915
  Receipt Date: 20090914
  Transmission Date: 20100115
  Serious: Yes (Hospitalization)
  Sender: FDA-Public Use
  Company Number: US-B.I. PHARMACEUTICALS,INC./RIDGEFIELD-2009-BP-10790BP

PATIENT
  Age: 73 Year
  Sex: Male

DRUGS (5)
  1. FLOMAX [Suspect]
     Indication: BENIGN PROSTATIC HYPERPLASIA
     Dosage: 0.4 MG
     Route: 048
     Dates: start: 20090602
  2. INSULIN [Concomitant]
     Indication: TYPE 1 DIABETES MELLITUS
  3. METFORMIN HCL [Concomitant]
     Indication: TYPE 1 DIABETES MELLITUS
  4. GLIPIZIDE [Concomitant]
     Indication: TYPE 1 DIABETES MELLITUS
  5. ENALAPRIL MALEATE [Concomitant]
     Indication: HYPERTENSION

REACTIONS (3)
  - DRUG INEFFECTIVE [None]
  - FALL [None]
  - RHABDOMYOLYSIS [None]
